FAERS Safety Report 8216497-5 (Version None)
Quarter: 2012Q1

REPORT INFORMATION
  Report Type: 
  Country: None (occurrence: None)
  Receive Date: 20120316
  Receipt Date: 20120302
  Transmission Date: 20120608
  Serious: No
  Sender: FDA-Public Use
  Company Number: US-ENDO PHARMACEUTICALS INC.-MSER20120017

PATIENT
  Sex: Female
  Weight: 63.56 kg

DRUGS (2)
  1. MORPHINE SULFATE [Suspect]
     Indication: PAIN
     Route: 048
     Dates: start: 20120227
  2. OPANA ER [Concomitant]
     Indication: PAIN
     Dosage: UNKNOWN
     Route: 048

REACTIONS (6)
  - NECK PAIN [None]
  - DRUG INEFFECTIVE [None]
  - SOMNOLENCE [None]
  - HEADACHE [None]
  - EYE PAIN [None]
  - FEELING ABNORMAL [None]
